FAERS Safety Report 10069963 (Version 1)
Quarter: 2014Q2

REPORT INFORMATION
  Report Type: Spontaneous
  Country: US (occurrence: US)
  Receive Date: 20140410
  Receipt Date: 20140410
  Transmission Date: 20141212
  Serious: Yes (Hospitalization, Other)
  Sender: FDA-Public Use
  Company Number: US-AMGEN INC.-USASP2014025194

PATIENT
  Age: 58 Year
  Sex: Female

DRUGS (1)
  1. ENBREL [Suspect]
     Indication: RHEUMATOID ARTHRITIS
     Dosage: 50 MG, WEEKLY
     Route: 065
     Dates: start: 201008, end: 20140331

REACTIONS (5)
  - Arthropathy [Recovered/Resolved]
  - Chondrolysis [Recovered/Resolved]
  - Mobility decreased [Recovered/Resolved]
  - Musculoskeletal discomfort [Recovered/Resolved]
  - Condition aggravated [Unknown]
